FAERS Safety Report 4723414-9 (Version None)
Quarter: 2005Q3

REPORT INFORMATION
  Report Type: 
  Country: None (occurrence: None)
  Receive Date: 20050721
  Receipt Date: 20050721
  Transmission Date: 20060218
  Serious: Yes (Hospitalization)
  Sender: FDA-Public Use
  Company Number: None

PATIENT
  Age: 48 Year
  Sex: Female

DRUGS (2)
  1. OXYCODONE [Suspect]
     Indication: PROCEDURAL PAIN
  2. OXYCODONE [Suspect]
     Indication: TOOTH EXTRACTION

REACTIONS (2)
  - PRURITUS [None]
  - THERAPY NON-RESPONDER [None]
